FAERS Safety Report 15256816 (Version 1)
Quarter: 2018Q3

REPORT INFORMATION
  Report Type: Spontaneous
  Country: CN (occurrence: CN)
  Receive Date: 20180808
  Receipt Date: 20180808
  Transmission Date: 20181010
  Serious: Yes (Life-Threatening, Hospitalization)
  Sender: FDA-Public Use
  Company Number: CN-MYLANLABS-2018M1060047

PATIENT
  Age: 64 Year
  Sex: Male

DRUGS (3)
  1. NORMAL SALINE [Concomitant]
     Active Substance: SODIUM CHLORIDE
     Indication: MEDICATION DILUTION
     Dosage: 10 ML MIXED LIQUOR WITH 0.5% LIDOCAINE AND 0.19% ROPIVACAINE (MIXED BY 10 ML 2% LIDOCAINE AND 10 ...
     Route: 065
  2. LIDOCAINE. [Suspect]
     Active Substance: LIDOCAINE
     Indication: LOCAL ANAESTHESIA
     Dosage: 10 ML MIXED LIQUOR WITH 0.5% LIDOCAINE AND 0.19% ROPIVACAINE (MIXED BY 10 ML 2% LIDOCAINE AND 10 ...
     Route: 065
  3. ROPIVACAINE [Suspect]
     Active Substance: ROPIVACAINE
     Indication: LOCAL ANAESTHESIA
     Dosage: 10 ML MIXED LIQUOR WITH 0.5% LIDOCAINE AND 0.19% ROPIVACAINE (MIXED BY 10 ML 2% LIDOCAINE AND 10 ...
     Route: 065

REACTIONS (2)
  - Anaesthetic complication [Recovered/Resolved]
  - Product administered at inappropriate site [Recovered/Resolved]
